FAERS Safety Report 20302374 (Version 2)
Quarter: 2022Q1

REPORT INFORMATION
  Report Type: Report from Study
  Country: KR (occurrence: KR)
  Receive Date: 20220106
  Receipt Date: 20220108
  Transmission Date: 20220423
  Serious: Yes (Hospitalization, Other)
  Sender: FDA-Public Use
  Company Number: KR-CELLTRION INC.-2021KR017951

PATIENT

DRUGS (2)
  1. TRUXIMA [Suspect]
     Active Substance: RITUXIMAB-ABBS
     Indication: Central nervous system lymphoma
     Dosage: 375 MG/M2 , WEEKLY (FIRST ADMINITRATION)
     Route: 042
     Dates: start: 20211123
  2. TRUXIMA [Suspect]
     Active Substance: RITUXIMAB-ABBS
     Dosage: 375 MG/M2, WEEKLY (LAST ADMINISTRATION)
     Route: 042
     Dates: start: 20211214

REACTIONS (1)
  - Hydrocephalus [Not Recovered/Not Resolved]

NARRATIVE: CASE EVENT DATE: 20211227
